FAERS Safety Report 8579158-9 (Version None)
Quarter: 2012Q3

REPORT INFORMATION
  Report Type: 
  Country: None (occurrence: None)
  Receive Date: 20120730
  Receipt Date: 20120730
  Transmission Date: 20120928
  Serious: Yes (Other)
  Sender: FDA-Public Use
  Company Number: None

PATIENT
  Age: 54 Year
  Sex: Female
  Weight: 61.2356 kg

DRUGS (1)
  1. LEVOTHYROXINE SODIUM [Suspect]
     Indication: HYPOTHYROIDISM
     Dosage: 75MCG QAM PO
     Route: 048
     Dates: start: 20120722, end: 20120727

REACTIONS (3)
  - IODINE ALLERGY [None]
  - PRODUCT QUALITY ISSUE [None]
  - RASH [None]
